FAERS Safety Report 6406016-8 (Version None)
Quarter: 2009Q4

REPORT INFORMATION
  Report Type: 
  Country: None (occurrence: None)
  Receive Date: 20091019
  Receipt Date: 20091009
  Transmission Date: 20100525
  Serious: Yes (Hospitalization, Other)
  Sender: FDA-Public Use
  Company Number: US-BIOGENIDEC-2009BI032978

PATIENT
  Sex: Female

DRUGS (6)
  1. AVONEX [Suspect]
     Indication: MULTIPLE SCLEROSIS
     Route: 030
     Dates: start: 20050409
  2. LEXAPRO [Concomitant]
  3. XANAX [Concomitant]
  4. TOPAMAX [Concomitant]
  5. PERCOCET [Concomitant]
  6. DILANTIN [Concomitant]

REACTIONS (12)
  - BLINDNESS TRANSIENT [None]
  - BRAIN INJURY [None]
  - CEREBROVASCULAR ACCIDENT [None]
  - CONVULSION [None]
  - DEAFNESS TRANSITORY [None]
  - HEMIPARESIS [None]
  - LETHARGY [None]
  - MULTIPLE SCLEROSIS RELAPSE [None]
  - OEDEMA PERIPHERAL [None]
  - SKIN DISORDER [None]
  - SLEEP APNOEA SYNDROME [None]
  - WEIGHT INCREASED [None]
